FAERS Safety Report 6635887-5 (Version None)
Quarter: 2010Q1

REPORT INFORMATION
  Report Type: 
  Country: None (occurrence: None)
  Receive Date: 20100311
  Receipt Date: 20100224
  Transmission Date: 20100710
  Serious: Yes (Other)
  Sender: FDA-Public Use
  Company Number: AUR-APL-2010-00602

PATIENT
  Age: 57 Year
  Sex: Male

DRUGS (2)
  1. LISINOPRIL [Suspect]
     Dosage: 10MG-QD-ORAL
     Route: 048
  2. SUTENT [Suspect]
     Dosage: 50MG-QD-ORAL
     Route: 048
     Dates: start: 20091021

REACTIONS (5)
  - ERECTILE DYSFUNCTION [None]
  - NEUROPATHY PERIPHERAL [None]
  - OEDEMA PERIPHERAL [None]
  - PALMAR-PLANTAR ERYTHRODYSAESTHESIA SYNDROME [None]
  - VISUAL IMPAIRMENT [None]
